FAERS Safety Report 15833480 (Version 1)
Quarter: 2018Q4

REPORT INFORMATION
  Report Type: Spontaneous
  Country: US (occurrence: US)
  Receive Date: 20181221
  Receipt Date: 20181221
  Transmission Date: 20190205
  Serious: Yes (Hospitalization)
  Sender: FDA-Public Use
  Company Number: None

PATIENT
  Age: 61 Year
  Sex: Male

DRUGS (5)
  1. PREDNISONE 5MG [Suspect]
     Active Substance: PREDNISONE
     Indication: RENAL TRANSPLANT
     Route: 048
     Dates: start: 20161112
  2. TACROLIMUS, 1 MG [Suspect]
     Active Substance: TACROLIMUS
     Indication: RENAL TRANSPLANT
     Route: 048
     Dates: start: 20161108
  3. LEVEMIR [Concomitant]
     Active Substance: INSULIN DETEMIR
  4. FUROSEMIDE. [Concomitant]
     Active Substance: FUROSEMIDE
  5. NOVOLOG [Concomitant]
     Active Substance: INSULIN ASPART

REACTIONS (1)
  - Kidney infection [None]

NARRATIVE: CASE EVENT DATE: 20181219
